FAERS Safety Report 15298094 (Version 3)
Quarter: 2018Q3

REPORT INFORMATION
  Report Type: Report from Study
  Country: DE (occurrence: DE)
  Receive Date: 20180820
  Receipt Date: 20180824
  Transmission Date: 20181010
  Serious: Yes (Hospitalization, Other)
  Sender: FDA-Public Use
  Company Number: DE-PFIZER INC-2018334621

PATIENT
  Age: 77 Year
  Sex: Female

DRUGS (6)
  1. MORPHINE SULFATE. [Suspect]
     Active Substance: MORPHINE SULFATE
     Indication: PAIN
     Dosage: UNK
     Route: 065
  2. VITAMIN D [ERGOCALCIFEROL] [Concomitant]
     Dosage: UNK
  3. TERIPARATIDE [Suspect]
     Active Substance: TERIPARATIDE
     Indication: OSTEOPOROSIS
     Dosage: 1 DF, 1X/DAY
     Route: 058
     Dates: start: 20170710
  4. CALCIUM [Concomitant]
     Active Substance: CALCIUM
     Dosage: UNK
  5. VERTIGOHEEL [ANAMIRTA COCCULUS;CONIUM MACULATUM;HOMEOPATHICS NOS] [Concomitant]
     Dosage: UNK
  6. NOVAMIN [PROCHLORPERAZINE] [Concomitant]
     Dosage: UNK

REACTIONS (6)
  - Nerve root injury lumbar [Recovered/Resolved]
  - Pain [Recovering/Resolving]
  - Dizziness [Not Recovered/Not Resolved]
  - Malaise [Not Recovered/Not Resolved]
  - Nausea [Not Recovered/Not Resolved]
  - Condition aggravated [Not Recovered/Not Resolved]

NARRATIVE: CASE EVENT DATE: 201802
